FAERS Safety Report 19582759 (Version 1)
Quarter: 2021Q3

REPORT INFORMATION
  Report Type: Spontaneous
  Country: SE (occurrence: SE)
  Receive Date: 20210720
  Receipt Date: 20210720
  Transmission Date: 20211014
  Serious: Yes (Disabling, Other)
  Sender: FDA-Public Use
  Company Number: SE-PFIZER INC-00H-150-0090112-00

PATIENT
  Age: 63 Year
  Sex: Male
  Weight: 92 kg

DRUGS (5)
  1. NITROUS OXIDE. [Concomitant]
     Active Substance: NITROUS OXIDE
     Dosage: UNK
  2. BUPIVACAINE HCL [Suspect]
     Active Substance: BUPIVACAINE HYDROCHLORIDE
     Indication: TRANSURETHRAL PROSTATECTOMY
     Dosage: FREQ: 2 DAYS
     Route: 037
     Dates: start: 19950101
  3. GLUCOSE [Concomitant]
     Active Substance: DEXTROSE
     Indication: TRANSURETHRAL PROSTATECTOMY
     Dosage: UNK
     Route: 037
  4. FENTANYL. [Concomitant]
     Active Substance: FENTANYL
     Dosage: UNK
  5. ISOFLURANE. [Concomitant]
     Active Substance: ISOFLURANE
     Dosage: FREQ: NOT REPORTED

REACTIONS (4)
  - Cauda equina syndrome [Not Recovered/Not Resolved]
  - Urinary incontinence [Recovered/Resolved with Sequelae]
  - Anal incontinence [Recovered/Resolved with Sequelae]
  - Spinal stenosis [Recovered/Resolved with Sequelae]

NARRATIVE: CASE EVENT DATE: 19950101
